FAERS Safety Report 9155296 (Version 1)
Quarter: 2013Q1

REPORT INFORMATION
  Report Type: Spontaneous
  Country: US (occurrence: US)
  Receive Date: 20130311
  Receipt Date: 20130311
  Transmission Date: 20140127
  Serious: No
  Sender: FDA-Public Use
  Company Number: US-009507513-1303USA000654

PATIENT
  Sex: Female
  Weight: 95.24 kg

DRUGS (1)
  1. IMPLANON [Suspect]
     Dosage: 1 DF, EVERY 3 YEAR
     Dates: start: 20120417, end: 20130227

REACTIONS (2)
  - Metrorrhagia [Unknown]
  - Device breakage [Unknown]
